FAERS Safety Report 18233454 (Version 1)
Quarter: 2020Q3

REPORT INFORMATION
  Report Type: Spontaneous
  Country: US (occurrence: US)
  Receive Date: 20200904
  Receipt Date: 20200904
  Transmission Date: 20201103
  Serious: Yes (Other)
  Sender: FDA-Public Use
  Company Number: US-CVS-2089399

PATIENT
  Sex: Female

DRUGS (1)
  1. TRIPLE ANTIBIOTIC AND PAIN RELIEF MAXIMUM STRENGTH [Suspect]
     Active Substance: BACITRACIN ZINC\NEOMYCIN SULFATE\POLYMYXIN B SULFATE\PRAMOXINE HYDROCHLORIDE
     Indication: SKIN ABRASION
     Route: 061
     Dates: start: 20200823, end: 20200823

REACTIONS (1)
  - Eye swelling [Recovering/Resolving]

NARRATIVE: CASE EVENT DATE: 20200824
